FAERS Safety Report 4561175-7 (Version None)
Quarter: 2005Q1

REPORT INFORMATION
  Report Type: 
  Country: None (occurrence: None)
  Receive Date: 20050126
  Receipt Date: 20050120
  Transmission Date: 20050727
  Serious: Yes (Hospitalization, Congenital Anomaly)
  Sender: FDA-Public Use
  Company Number: 200510131DE

PATIENT
  Sex: Female

DRUGS (5)
  1. ENOXAPARIN SODIUM [Suspect]
     Indication: CONGENITAL THROMBOCYTE DISORDER
     Route: 064
     Dates: start: 20040914, end: 20041101
  2. ENOXAPARIN SODIUM [Suspect]
     Indication: MATERNAL CONDITION AFFECTING FOETUS
     Route: 064
     Dates: start: 20040914, end: 20041101
  3. ENOXAPARIN SODIUM [Suspect]
     Indication: PLATELET AGGREGATION ABNORMAL
     Route: 064
     Dates: start: 20040914, end: 20041101
  4. ACTRAPID INNOLET [Concomitant]
     Route: 064
     Dates: start: 20040923, end: 20041118
  5. DEXAMETHASON [Concomitant]
     Route: 064

REACTIONS (3)
  - CARDIAC MURMUR [None]
  - DRUG EXPOSURE DURING PREGNANCY [None]
  - VENTRICULAR SEPTAL DEFECT [None]
